FAERS Safety Report 13166926 (Version 2)
Quarter: 2018Q3

REPORT INFORMATION
  Report Type: Spontaneous
  Country: CA (occurrence: CA)
  Receive Date: 20170131
  Receipt Date: 20180724
  Transmission Date: 20181010
  Serious: Yes (Life-Threatening, Hospitalization, Other)
  Sender: FDA-Public Use
  Company Number: CA-AMGEN-CANSP2017015386

PATIENT
  Age: 20 Year
  Sex: Male
  Weight: 66 kg

DRUGS (5)
  1. PROCYTOX [Suspect]
     Active Substance: CYCLOPHOSPHAMIDE
     Indication: BONE MARROW TRANSPLANT REJECTION
     Dosage: 2000 MG, UNK
     Route: 065
  2. NABILONE [Concomitant]
     Active Substance: NABILONE
     Dosage: 1 MG, TID
     Route: 048
     Dates: start: 20161110, end: 20161207
  3. INOTUZUMAB OZOGAMICIN [Suspect]
     Active Substance: INOTUZUMAB OZOGAMICIN
     Indication: ACUTE LEUKAEMIA
     Dosage: 0.5 TO 0.94 MG/M2, QD
     Route: 042
     Dates: start: 20161110, end: 20161207
  4. ZYLOPRIM [Concomitant]
     Active Substance: ALLOPURINOL
     Indication: PROPHYLAXIS
     Dosage: 300 MG, BID
     Route: 048
     Dates: start: 20161109, end: 20161117
  5. BLINCYTO [Suspect]
     Active Substance: BLINATUMOMAB
     Indication: B-CELL TYPE ACUTE LEUKAEMIA
     Dosage: UNK
     Route: 065

REACTIONS (4)
  - Treatment failure [Recovering/Resolving]
  - Venoocclusive liver disease [Recovering/Resolving]
  - Acute kidney injury [Recovering/Resolving]
  - Encephalopathy [Recovering/Resolving]

NARRATIVE: CASE EVENT DATE: 20161229
